FAERS Safety Report 25674790 (Version 1)
Quarter: 2025Q3

REPORT INFORMATION
  Report Type: Report from Study
  Country: US (occurrence: US)
  Receive Date: 20250813
  Receipt Date: 20250813
  Transmission Date: 20251021
  Serious: No
  Sender: SUNOVION
  Company Number: US-SUMITOMO PHARMA SWITZERLAND GMBH-2025SPA003567

PATIENT
  Age: 73 Year
  Sex: Male

DRUGS (11)
  1. ORGOVYX [Suspect]
     Active Substance: RELUGOLIX
     Indication: Prostate cancer
     Route: 048
  2. ORGOVYX [Suspect]
     Active Substance: RELUGOLIX
     Dosage: 120 MG, QD
     Route: 048
  3. ASPIRIN [Concomitant]
     Active Substance: ASPIRIN
  4. ATORVASTATIN [Concomitant]
     Active Substance: ATORVASTATIN
  5. ESCITALOPRAM [Concomitant]
     Active Substance: ESCITALOPRAM OXALATE
  6. LATANOPROST [Concomitant]
     Active Substance: LATANOPROST
  7. MINERALS\VITAMINS [Concomitant]
     Active Substance: MINERALS\VITAMINS
  8. PROLIA [Concomitant]
     Active Substance: DENOSUMAB
  9. VITAMIN D3 [Concomitant]
     Active Substance: CHOLECALCIFEROL
  10. MENAQUINONE 6 [Concomitant]
     Active Substance: MENAQUINONE 6
  11. ZETIA [Concomitant]
     Active Substance: EZETIMIBE

REACTIONS (5)
  - Saliva discolouration [Unknown]
  - Dry mouth [Unknown]
  - Nausea [Unknown]
  - Fatigue [Unknown]
  - Hot flush [Unknown]
